FAERS Safety Report 5246166-5 (Version None)
Quarter: 2007Q1

REPORT INFORMATION
  Report Type: 
  Country: None (occurrence: None)
  Receive Date: 20070220
  Receipt Date: 20070205
  Transmission Date: 20070707
  Serious: Yes (Hospitalization)
  Sender: FDA-Public Use
  Company Number: ENC200700015

PATIENT
  Age: 67 Year
  Sex: Male

DRUGS (5)
  1. ARGATROBAN [Suspect]
     Dosage: INTRAVENOUS
     Route: 042
     Dates: start: 20070124, end: 20070130
  2. RADICUT (EDARAVONE) [Suspect]
     Dosage: 30 MG, QD, INTRAVENOUS 60 MG, QD, INTRAVENOUS
     Route: 042
     Dates: start: 20070124, end: 20070124
  3. RADICUT (EDARAVONE) [Suspect]
     Dosage: 30 MG, QD, INTRAVENOUS 60 MG, QD, INTRAVENOUS
     Route: 042
     Dates: start: 20070125, end: 20070130
  4. DEXTRAN L (CALCIUM CHLORIDE, ANHYDROUS, DEXTRAN, POTASSIUM CHLORIDE, S [Concomitant]
  5. CITICOLINE [Concomitant]

REACTIONS (2)
  - GRANULOCYTE COUNT DECREASED [None]
  - WHITE BLOOD CELL COUNT DECREASED [None]
